FAERS Safety Report 9249948 (Version 1)
Quarter: 2013Q2

REPORT INFORMATION
  Report Type: Spontaneous
  Country: FR (occurrence: FR)
  Receive Date: 20130424
  Receipt Date: 20130424
  Transmission Date: 20140414
  Serious: Yes (Hospitalization)
  Sender: FDA-Public Use
  Company Number: FR-ROCHE-1215439

PATIENT
  Age: 87 Year
  Sex: Female

DRUGS (10)
  1. MABTHERA [Suspect]
     Indication: HAEMOPHILIA
     Route: 042
     Dates: start: 20130123
  2. CORTANCYL [Suspect]
     Indication: PRODUCT USED FOR UNKNOWN INDICATION
     Route: 048
     Dates: start: 20130123, end: 20130206
  3. FORADIL [Concomitant]
  4. EUPHYLLINE [Concomitant]
  5. MODURETIC [Concomitant]
  6. SPIRONOLACTON [Concomitant]
  7. ZOPICLONE [Concomitant]
  8. CALCIDOSE [Concomitant]
  9. DIFFU K [Concomitant]
  10. CORTANCYL [Concomitant]

REACTIONS (2)
  - Lung infection [Recovered/Resolved]
  - Hypoxia [Recovered/Resolved]
